FAERS Safety Report 10870056 (Version 3)
Quarter: 2015Q2

REPORT INFORMATION
  Report Type: Report from Study
  Country: US (occurrence: None)
  Receive Date: 20150223
  Receipt Date: 20150409
  Transmission Date: 20150821
  Serious: Yes (Other)
  Sender: FDA-Public Use
  Company Number: ADR-2015-00365

PATIENT
  Age: 61 Year
  Sex: Male

DRUGS (15)
  1. ACTOS [Suspect]
     Active Substance: PIOGLITAZONE HYDROCHLORIDE
     Dates: start: 20060101
  2. METFORMIN HYDROCHLORIDE. [Suspect]
     Active Substance: METFORMIN HYDROCHLORIDE
     Dates: start: 20060101
  3. METOPROLOL SUCCINATE. [Suspect]
     Active Substance: METOPROLOL SUCCINATE
     Dates: start: 20141007
  4. AGGRENOX [Suspect]
     Active Substance: ASPIRIN\DIPYRIDAMOLE
     Dates: start: 20050411
  5. FOLBEE (CYANOCOBALAMIN, FOLIC ACID, PYRIDOXINE HYDROCHLORIDE) [Suspect]
     Active Substance: CYANOCOBALAMIN\FOLIC ACID\PYRIDOXINE HYDROCHLORIDE
     Dates: start: 20050411
  6. DIOVAN [Suspect]
     Active Substance: VALSARTAN
     Dates: start: 20050411
  7. SENNA S [Suspect]
     Active Substance: DOCUSATE SODIUM\SENNA LEAF
     Dates: start: 20050411
  8. FOLTX [Suspect]
     Active Substance: CYANOCOBALAMIN CO-57\FOLIC ACID\PYRIDOXINE HYDROCHLORIDE
     Dates: start: 20050411
  9. FISH OIL [Suspect]
     Active Substance: FISH OIL
     Dates: start: 20070101
  10. CRESTOR [Suspect]
     Active Substance: ROSUVASTATIN CALCIUM
     Dates: start: 200504
  11. ESCITALOPRAM OXALATE. [Suspect]
     Active Substance: ESCITALOPRAM OXALATE
     Dates: start: 20050411
  12. BACLOFEN. [Suspect]
     Active Substance: BACLOFEN
     Indication: MUSCLE SPASTICITY
     Dates: start: 20050411
  13. CENTRUM SILVER [Suspect]
     Active Substance: VITAMINS
     Dates: start: 20050411
  14. NORVASC [Suspect]
     Active Substance: AMLODIPINE BESYLATE
     Dates: start: 20050411
  15. ASPIRIN. [Suspect]
     Active Substance: ASPIRIN
     Dates: start: 20141007

REACTIONS (5)
  - Supraventricular tachycardia [None]
  - Diastolic dysfunction [None]
  - Mitral valve stenosis [None]
  - Condition aggravated [None]
  - Dyspnoea [None]

NARRATIVE: CASE EVENT DATE: 20150109
